FAERS Safety Report 9881885 (Version 1)
Quarter: 2014Q1

REPORT INFORMATION
  Report Type: Report from Study
  Country: GB (occurrence: GB)
  Receive Date: 20140207
  Receipt Date: 20140207
  Transmission Date: 20141002
  Serious: Yes (Other)
  Sender: FDA-Public Use
  Company Number: PHFR2014GB001278

PATIENT
  Age: 41 Year
  Sex: Female

DRUGS (7)
  1. GILENYA [Suspect]
     Indication: MULTIPLE SCLEROSIS
     Dosage: 0.5 MG, QD
     Route: 048
     Dates: start: 20140205
  2. TRAMADOL [Concomitant]
     Dosage: 50 MG, BID
  3. CITALOPRAM [Concomitant]
     Dosage: 20 MG, QD
  4. PROCHLORPERAZNE PS [Concomitant]
     Dosage: 10 MG, QD
  5. DICLOFENAC [Concomitant]
     Dosage: 50 MG, QD
  6. CARBAMAZEPINE [Concomitant]
     Dosage: 400 MG, QD
  7. PAROXETINE [Concomitant]
     Dosage: 60 MG, QD

REACTIONS (2)
  - Tachycardia [Recovered/Resolved]
  - Blood pressure systolic decreased [Recovered/Resolved]
